FAERS Safety Report 5541882-X (Version None)
Quarter: 2007Q4

REPORT INFORMATION
  Report Type: 
  Country: None (occurrence: None)
  Receive Date: 20071210
  Receipt Date: 20071127
  Transmission Date: 20080405
  Serious: Yes (Other)
  Sender: FDA-Public Use
  Company Number: US-ROCHE-533747

PATIENT
  Age: 71 Year
  Sex: Female

DRUGS (4)
  1. BONIVA [Suspect]
     Indication: BONE DISORDER
     Route: 048
  2. CARAFATE [Concomitant]
  3. PREVACID [Concomitant]
  4. PEPCID COMPLETE [Concomitant]

REACTIONS (2)
  - CHEST PAIN [None]
  - GASTROOESOPHAGEAL REFLUX DISEASE [None]
